FAERS Safety Report 7952633-3 (Version None)
Quarter: 2011Q4

REPORT INFORMATION
  Report Type: 
  Country: None (occurrence: None)
  Receive Date: 20111201
  Receipt Date: 20111122
  Transmission Date: 20120403
  Serious: Yes (Other)
  Sender: FDA-Public Use
  Company Number: US-US-EMD SERONO, INC.-233496K05USA

PATIENT
  Sex: Female

DRUGS (3)
  1. GABAPENTIN [Concomitant]
  2. REBIF [Suspect]
     Indication: MULTIPLE SCLEROSIS
     Route: 058
     Dates: start: 20020705
  3. STEROIDS [Suspect]
     Indication: PRODUCT USED FOR UNKNOWN INDICATION

REACTIONS (5)
  - CONTUSION [None]
  - PYREXIA [None]
  - HEADACHE [None]
  - DIABETES MELLITUS [None]
  - RETINAL TEAR [None]
